FAERS Safety Report 9548329 (Version 1)
Quarter: 2013Q3

REPORT INFORMATION
  Report Type: Spontaneous
  Country: US (occurrence: None)
  Receive Date: 20130923
  Receipt Date: 20130923
  Transmission Date: 20140515
  Serious: Yes (Hospitalization)
  Sender: FDA-Public Use
  Company Number: None

PATIENT
  Age: 59 Year
  Sex: Male
  Weight: 106.4 kg

DRUGS (2)
  1. SODIUM CHLORIDE [Suspect]
     Indication: MENINGITIS
     Route: 050
     Dates: start: 20130903, end: 20130903
  2. SODIUM CHLORIDE [Suspect]
     Indication: MENINGITIS
     Route: 050
     Dates: start: 20130903, end: 20130903

REACTIONS (2)
  - Headache [None]
  - Neck pain [None]
